FAERS Safety Report 8350763-8 (Version None)
Quarter: 2012Q2

REPORT INFORMATION
  Report Type: 
  Country: None (occurrence: None)
  Receive Date: 20120510
  Receipt Date: 20120503
  Transmission Date: 20120825
  Serious: Yes (Congenital Anomaly)
  Sender: FDA-Public Use
  Company Number: US-GLAXOSMITHKLINE-A0976991A

PATIENT
  Sex: Female
  Weight: 4 kg

DRUGS (3)
  1. PAXIL [Suspect]
     Indication: ANXIETY
     Route: 064
     Dates: start: 20000808
  2. MULTI-VITAMINS [Concomitant]
  3. PHENERGAN [Concomitant]

REACTIONS (2)
  - FOETAL EXPOSURE DURING PREGNANCY [None]
  - CARDIAC MURMUR [None]
